FAERS Safety Report 22171119 (Version 7)
Quarter: 2023Q2

REPORT INFORMATION
  Report Type: Spontaneous
  Country: US (occurrence: US)
  Receive Date: 20230404
  Receipt Date: 20230615
  Transmission Date: 20230722
  Serious: No
  Sender: FDA-Public Use
  Company Number: US-PFIZER INC-202300131326

PATIENT
  Age: 12 Year
  Sex: Male
  Weight: 33.57 kg

DRUGS (2)
  1. GENOTROPIN [Suspect]
     Active Substance: SOMATROPIN
     Indication: Growth hormone deficiency
     Dosage: 1.3 ONCE A DAY
     Dates: start: 2023
  2. GENOTROPIN [Suspect]
     Active Substance: SOMATROPIN
     Dosage: 1.3 MG, DAILY
     Dates: start: 2023

REACTIONS (3)
  - Poor quality device used [Unknown]
  - Liquid product physical issue [Unknown]
  - Device defective [Unknown]

NARRATIVE: CASE EVENT DATE: 20230101
